FAERS Safety Report 19868292 (Version 2)
Quarter: 2022Q2

REPORT INFORMATION
  Report Type: Spontaneous
  Country: JP (occurrence: JP)
  Receive Date: 20210921
  Receipt Date: 20220414
  Transmission Date: 20220720
  Serious: Yes (Death)
  Sender: FDA-Public Use
  Company Number: JP-PFIZER INC-202101178910

PATIENT
  Age: 66 Year
  Sex: Male
  Weight: 61.1 kg

DRUGS (11)
  1. BESPONSA [Suspect]
     Active Substance: INOTUZUMAB OZOGAMICIN
     Dosage: 1.3 MG, 1X/DAY
     Route: 041
     Dates: start: 20210608, end: 20210608
  2. BESPONSA [Suspect]
     Active Substance: INOTUZUMAB OZOGAMICIN
     Dosage: 0.8 MG, WEEKLY
     Route: 041
     Dates: start: 20210615, end: 20210622
  3. SULFAMETHOXAZOLE/TRIMIPRAMINE [Concomitant]
     Dosage: 1 DF, 1X/DAY
     Route: 048
     Dates: start: 20210604, end: 20210801
  4. DECADRON [Concomitant]
     Active Substance: DEXAMETHASONE
     Dosage: 9.9 MG, WEEKLY
     Route: 041
     Dates: start: 20210608, end: 20210622
  5. POLARAMINE [Concomitant]
     Active Substance: DEXCHLORPHENIRAMINE MALEATE
     Dosage: 5 MG, WEEKLY
     Route: 041
     Dates: start: 20210608, end: 20210622
  6. GRANISETRON [Concomitant]
     Active Substance: GRANISETRON
     Dosage: 1 MG, WEEKLY
     Route: 041
     Dates: start: 20210608, end: 20210622
  7. ASPIRIN [Concomitant]
     Active Substance: ASPIRIN
     Dosage: 100 MG, 1X/DAY
     Route: 048
     Dates: start: 20201114, end: 20210801
  8. AMLODIPINE BESYLATE [Concomitant]
     Active Substance: AMLODIPINE BESYLATE
     Dosage: 10 MG, 1X/DAY
     Route: 048
     Dates: start: 20190110, end: 20210801
  9. CYMBALTA [Concomitant]
     Active Substance: DULOXETINE HYDROCHLORIDE
     Dosage: 20 MG, 1X/DAY
     Route: 048
     Dates: start: 20180925, end: 20210801
  10. ZOPICLONE [Concomitant]
     Active Substance: ZOPICLONE
     Dosage: 7.5 MG, 1X/DAY
     Route: 048
     Dates: start: 20190111, end: 20210801
  11. PREGABALIN [Concomitant]
     Active Substance: PREGABALIN
     Dosage: 75 MG, 2X/DAY
     Route: 048
     Dates: start: 20210310, end: 20210801

REACTIONS (2)
  - Neoplasm progression [Fatal]
  - Headache [Recovered/Resolved]

NARRATIVE: CASE EVENT DATE: 20210618
